FAERS Safety Report 9302676 (Version 2)
Quarter: 2013Q2

REPORT INFORMATION
  Report Type: Report from Study
  Country: IT (occurrence: IT)
  Receive Date: 20130522
  Receipt Date: 20130611
  Transmission Date: 20140414
  Serious: Yes (Other)
  Sender: FDA-Public Use
  Company Number: IT-JNJFOC-20130318592

PATIENT
  Age: 77 Year
  Sex: Female
  Weight: 105 kg

DRUGS (3)
  1. TAPENTADOL (PR, P.R. TABLET) [Suspect]
     Indication: BACK PAIN
     Route: 048
     Dates: start: 20130215, end: 20130313
  2. PARACETAMOL W/TRAMADOL [Concomitant]
     Indication: BACK PAIN
     Route: 048
  3. PARACETAMOL W/TRAMADOL [Concomitant]
     Indication: BACK PAIN
     Route: 048

REACTIONS (8)
  - Serotonin syndrome [Unknown]
  - Diarrhoea [Unknown]
  - Asthenia [Unknown]
  - Hallucination, visual [Unknown]
  - Weight decreased [Unknown]
  - Mood altered [Unknown]
  - Derealisation [Unknown]
  - Decreased appetite [Unknown]
